FAERS Safety Report 7992409-4 (Version None)
Quarter: 2011Q4

REPORT INFORMATION
  Report Type: 
  Country: None (occurrence: None)
  Receive Date: 20111219
  Receipt Date: 20101202
  Transmission Date: 20120403
  Serious: No
  Sender: FDA-Public Use
  Company Number: US-ASTRAZENECA-2010SE57339

PATIENT
  Age: 666 Month
  Sex: Female
  Weight: 61.2 kg

DRUGS (4)
  1. CRESTOR [Suspect]
     Indication: BLOOD CHOLESTEROL INCREASED
     Route: 048
     Dates: start: 20081201, end: 20090301
  2. CRESTOR [Suspect]
     Route: 048
     Dates: start: 20090301, end: 20100401
  3. PRILOSEC [Suspect]
     Indication: GASTROOESOPHAGEAL REFLUX DISEASE
     Route: 048
  4. FOSAMAX [Concomitant]

REACTIONS (5)
  - THROAT IRRITATION [None]
  - FUNGAL INFECTION [None]
  - PHARYNGITIS [None]
  - GASTROOESOPHAGEAL REFLUX DISEASE [None]
  - STREPTOCOCCAL INFECTION [None]
